FAERS Safety Report 10064181 (Version 1)
Quarter: 2014Q2

REPORT INFORMATION
  Report Type: Spontaneous
  Country: US (occurrence: None)
  Receive Date: 20140407
  Receipt Date: 20140407
  Transmission Date: 20141212
  Serious: Yes (Death, Life-Threatening, Hospitalization, Disabling)
  Sender: FDA-Public Use
  Company Number: None

PATIENT
  Age: 74 Year
  Sex: Male
  Weight: 87 kg

DRUGS (1)
  1. RECLAST [Suspect]
     Indication: OSTEOPOROSIS
     Dosage: 5MG, 1ST INFUSION, INTO A VEIN
     Route: 042
     Dates: start: 20130624, end: 20130624

REACTIONS (35)
  - Pain [None]
  - Mobility decreased [None]
  - Dysstasia [None]
  - Interstitial lung disease [None]
  - Atrial flutter [None]
  - Acute respiratory distress syndrome [None]
  - Muscular weakness [None]
  - Insomnia [None]
  - Swelling [None]
  - Decreased appetite [None]
  - Depression [None]
  - Constipation [None]
  - Hypertension [None]
  - Asthenia [None]
  - Gait disturbance [None]
  - Clostridium difficile infection [None]
  - Coma [None]
  - Cerebrovascular accident [None]
  - Cardiogenic shock [None]
  - Neurogenic shock [None]
  - Renal failure acute [None]
  - Systemic inflammatory response syndrome [None]
  - Sepsis [None]
  - Pneumonia [None]
  - Cellulitis [None]
  - Supraventricular tachycardia [None]
  - Atrial fibrillation [None]
  - Infection [None]
  - Blood calcium decreased [None]
  - Thrombocytopenia [None]
  - Hyperkalaemia [None]
  - Serratia test positive [None]
  - Candida test positive [None]
  - Rheumatoid arthritis [None]
  - Renal tubular necrosis [None]
